FAERS Safety Report 5318510-1 (Version None)
Quarter: 2007Q2

REPORT INFORMATION
  Report Type: 
  Country: None (occurrence: None)
  Receive Date: 20070501
  Receipt Date: 20070419
  Transmission Date: 20071010
  Serious: Yes (Death, Hospitalization)
  Sender: FDA-Public Use
  Company Number: MEDI-0005380

PATIENT
  Age: 2 Month
  Sex: Female
  Weight: 3.228 kg

DRUGS (4)
  1. SYNAGIS [Suspect]
     Indication: DYSPNOEA
     Dosage: INTRAMUSCULAR
     Route: 030
     Dates: start: 20070130, end: 20070130
  2. SYNAGIS [Suspect]
     Indication: PREMATURE BABY
     Dosage: INTRAMUSCULAR
     Route: 030
     Dates: start: 20070130, end: 20070130
  3. PHENOBARBITAL TAB [Concomitant]
  4. THEOPHYLLINE [Concomitant]

REACTIONS (3)
  - DIARRHOEA [None]
  - SEPSIS [None]
  - VIRAL INFECTION [None]
